FAERS Safety Report 5037356-5 (Version None)
Quarter: 2006Q2

REPORT INFORMATION
  Report Type: 
  Country: None (occurrence: None)
  Receive Date: 20060628
  Receipt Date: 20050601
  Transmission Date: 20061013
  Serious: Yes (Hospitalization)
  Sender: FDA-Public Use
  Company Number: PHHO2005US08776

PATIENT
  Age: 57 Year
  Sex: Female
  Weight: 113.8 kg

DRUGS (21)
  1. GLEEVEC [Suspect]
     Indication: CHRONIC MYELOID LEUKAEMIA
     Dosage: 400 MG, BID
     Route: 048
     Dates: start: 20050316, end: 20050528
  2. DIOVAN [Suspect]
     Indication: HYPERTENSION
     Dosage: 160 MG, QD
     Route: 048
     Dates: end: 20050528
  3. ACTOS [Concomitant]
  4. NEURONTIN [Concomitant]
  5. PREVACID [Concomitant]
  6. LANTUS [Concomitant]
  7. PROPOXYPHENE HYDROCHLORIDE [Concomitant]
  8. VERAPAMIL [Concomitant]
  9. LASIX [Concomitant]
  10. AMITRIPTYLINE HCL [Concomitant]
  11. MICRO-K [Concomitant]
  12. METFORMIN [Concomitant]
  13. LANOXIN [Concomitant]
  14. GLIPIZIDE [Concomitant]
  15. PROMETHAZINE [Concomitant]
  16. LOMOTIL [Concomitant]
  17. CALCIUM CITRATE [Concomitant]
  18. K-LYTE [Concomitant]
  19. HYDROMORPHONE HCL [Concomitant]
  20. LORAZEPAM [Concomitant]
  21. ZOFRAN [Concomitant]

REACTIONS (6)
  - BLOOD CREATININE INCREASED [None]
  - BLOOD GLUCOSE INCREASED [None]
  - BLOOD UREA INCREASED [None]
  - DIARRHOEA [None]
  - DRUG INTERACTION [None]
  - RENAL FAILURE ACUTE [None]
